FAERS Safety Report 21677820 (Version 1)
Quarter: 2022Q4

REPORT INFORMATION
  Report Type: Report from Study
  Country: US (occurrence: US)
  Receive Date: 20221203
  Receipt Date: 20221203
  Transmission Date: 20230113
  Serious: No
  Sender: FDA-Public Use
  Company Number: US-ABBVIE-4187292

PATIENT
  Age: 32 Year
  Sex: Female

DRUGS (2)
  1. HUMIRA [Suspect]
     Active Substance: ADALIMUMAB
     Indication: Hidradenitis
     Dosage: FORM STRENGTH: 40?CITRATE FREE
     Route: 058
     Dates: start: 20220630, end: 20221010
  2. AZITHROMYCIN [Suspect]
     Active Substance: AZITHROMYCIN
     Indication: Product used for unknown indication

REACTIONS (3)
  - Pharyngitis streptococcal [Unknown]
  - Illness [Unknown]
  - Rheumatic fever [Unknown]

NARRATIVE: CASE EVENT DATE: 20221024
